FAERS Safety Report 7498742-7 (Version None)
Quarter: 2011Q2

REPORT INFORMATION
  Report Type: 
  Country: None (occurrence: None)
  Receive Date: 20110524
  Receipt Date: 20110517
  Transmission Date: 20111010
  Serious: Yes (Life-Threatening, Disabling)
  Sender: FDA-Public Use
  Company Number: AT-ELI_LILLY_AND_COMPANY-AT201105005860

PATIENT
  Age: 52 Year
  Sex: Male
  Weight: 64 kg

DRUGS (13)
  1. OXAZEPAM [Concomitant]
     Dosage: 60 MG, UNK
     Dates: start: 20100302, end: 20100316
  2. TRAZODONE HCL [Concomitant]
     Dosage: 150 MG, UNK
     Dates: start: 20100330
  3. ZYPREXA [Suspect]
     Dosage: 5 MG, QD
     Dates: start: 20100409, end: 20100413
  4. OXAZEPAM [Concomitant]
     Dosage: 15 MG, UNK
     Dates: start: 20100330, end: 20100406
  5. OXAZEPAM [Concomitant]
     Dosage: 45 MG, UNK
     Dates: start: 20100327, end: 20100329
  6. ZYPREXA [Suspect]
     Dosage: 5 MG, QD
     Dates: start: 20100317, end: 20100321
  7. ZYPREXA [Suspect]
     Dosage: 10 MG, QD
     Dates: start: 20100322, end: 20100408
  8. TRESLEEN [Concomitant]
     Dosage: 50 MG, UNK
     Dates: start: 20100302, end: 20100316
  9. ZYPREXA [Suspect]
     Dosage: 10 MG, QD
     Dates: start: 20100414
  10. OXAZEPAM [Concomitant]
     Dosage: 7.5 MG, UNK
     Dates: start: 20100407, end: 20100503
  11. OXAZEPAM [Concomitant]
     Dosage: 22.5 MG, UNK
     Dates: start: 20100529
  12. TRAZODONE HCL [Concomitant]
     Dosage: 100 MG, UNK
     Dates: start: 20100317, end: 20100329
  13. TRESLEEN [Concomitant]
     Dosage: 100 MG, UNK
     Dates: start: 20100317, end: 20100413

REACTIONS (2)
  - TINNITUS [None]
  - PSYCHOTIC DISORDER [None]
